FAERS Safety Report 19959181 (Version 1)
Quarter: 2021Q4

REPORT INFORMATION
  Report Type: Spontaneous
  Country: US (occurrence: US)
  Receive Date: 20211012
  Receipt Date: 20211012
  Transmission Date: 20220304
  Serious: No
  Sender: FDA-Public Use
  Company Number: None

PATIENT
  Age: 37 Year
  Sex: Female

DRUGS (1)
  1. HUMIRA [Suspect]
     Active Substance: ADALIMUMAB
     Indication: Arthritis
     Dosage: OTHER DOSE:1 PEN;
     Route: 058
     Dates: start: 202109

REACTIONS (3)
  - Headache [None]
  - Injection site erythema [None]
  - Injection site urticaria [None]

NARRATIVE: CASE EVENT DATE: 20210901
